FAERS Safety Report 16749412 (Version 1)
Quarter: 2019Q3

REPORT INFORMATION
  Report Type: Spontaneous
  Country: CA (occurrence: CA)
  Receive Date: 20190828
  Receipt Date: 20190828
  Transmission Date: 20191005
  Serious: Yes (Hospitalization)
  Sender: FDA-Public Use
  Company Number: CA-PFIZER INC-2019367051

PATIENT
  Age: 54 Year
  Sex: Male

DRUGS (5)
  1. GEMCITABINE HYDROCHLORIDE. [Suspect]
     Active Substance: GEMCITABINE HYDROCHLORIDE
     Indication: PANCREATIC CARCINOMA
     Dosage: 2250 MG,  CYCLIC (1 EVERY 4 WEEKS)
     Route: 041
  2. ABRAXANE [Suspect]
     Active Substance: PACLITAXEL
     Indication: PANCREATIC CARCINOMA
     Dosage: 281 MG, CYCLIC (1 EVERY 4 WEEKS)
     Route: 041
  3. DALTEPARIN SODIUM [Concomitant]
     Active Substance: DALTEPARIN SODIUM
     Indication: DEEP VEIN THROMBOSIS
     Dosage: UNK
     Route: 065
  4. TICILIMUMAB [Suspect]
     Active Substance: TREMELIMUMAB
     Indication: PANCREATIC CARCINOMA
     Dosage: 75 MG, UNK (1 EVERY 4 WEEK(S))
     Route: 041
  5. DURVALUMAB. [Suspect]
     Active Substance: DURVALUMAB
     Indication: PANCREATIC CARCINOMA
     Dosage: 1500 MG, CYCLIC (1 EVERY 4 WEEKS)
     Route: 041

REACTIONS (2)
  - Pyrexia [Not Recovered/Not Resolved]
  - Lethargy [Not Recovered/Not Resolved]
